FAERS Safety Report 8341831-5 (Version None)
Quarter: 2012Q2

REPORT INFORMATION
  Report Type: 
  Country: None (occurrence: None)
  Receive Date: 20120507
  Receipt Date: 20120426
  Transmission Date: 20120825
  Serious: Yes (Death, Hospitalization)
  Sender: FDA-Public Use
  Company Number: US-ACTELION-A-US2012-62551

PATIENT

DRUGS (7)
  1. COUMADIN [Concomitant]
  2. EPOPROSTENOL SODIUM [Suspect]
     Indication: PULMONARY ARTERIAL HYPERTENSION
     Dosage: 36 NG/KG, PER MIN
     Route: 042
     Dates: start: 20120201, end: 20120319
  3. TRACLEER [Concomitant]
     Indication: PULMONARY ARTERIAL HYPERTENSION
     Dosage: UNK
     Route: 048
     Dates: start: 20081101
  4. CYMBALTA [Concomitant]
  5. SILDENAFIL [Concomitant]
  6. EPOPROSTENOL SODIUM [Suspect]
     Dosage: 39.5 NG/KG, PER MIN
     Route: 042
  7. OXYGEN [Concomitant]

REACTIONS (6)
  - DELUSION [None]
  - SCLERODERMA [None]
  - HALLUCINATION [None]
  - DISEASE PROGRESSION [None]
  - GENERAL PHYSICAL HEALTH DETERIORATION [None]
  - RENAL IMPAIRMENT [None]
